FAERS Safety Report 8475376-9 (Version None)
Quarter: 2012Q2

REPORT INFORMATION
  Report Type: 
  Country: None (occurrence: None)
  Receive Date: 20120628
  Receipt Date: 20120614
  Transmission Date: 20120825
  Serious: Yes (Other)
  Sender: FDA-Public Use
  Company Number: US-ELI_LILLY_AND_COMPANY-US201206005656

PATIENT
  Age: 50 Year
  Sex: Female

DRUGS (2)
  1. CYMBALTA [Suspect]
     Indication: MAJOR DEPRESSION
     Dosage: 60 MG, QD
     Route: 065
     Dates: start: 20100701
  2. CYMBALTA [Suspect]
     Dosage: 60 MG, BID
     Dates: end: 20120301

REACTIONS (40)
  - FOOT FRACTURE [None]
  - UPPER RESPIRATORY TRACT INFECTION [None]
  - INFLUENZA [None]
  - DIZZINESS [None]
  - INSOMNIA [None]
  - MUSCULOSKELETAL PAIN [None]
  - MUSCLE SPASMS [None]
  - HEADACHE [None]
  - SOMNOLENCE [None]
  - OROPHARYNGEAL PAIN [None]
  - BLOOD URINE PRESENT [None]
  - FURUNCLE [None]
  - NASOPHARYNGITIS [None]
  - DISTURBANCE IN ATTENTION [None]
  - DRY MOUTH [None]
  - VISION BLURRED [None]
  - PARAESTHESIA [None]
  - AGITATION [None]
  - FLUSHING [None]
  - HAND FRACTURE [None]
  - AMNESIA [None]
  - DYSPEPSIA [None]
  - DECREASED APPETITE [None]
  - DRUG EFFECT DECREASED [None]
  - CONTUSION [None]
  - HYPERHIDROSIS [None]
  - SCAR [None]
  - COUGH [None]
  - FATIGUE [None]
  - LOSS OF CONSCIOUSNESS [None]
  - BACK PAIN [None]
  - HYPERTENSION [None]
  - NAUSEA [None]
  - CONSTIPATION [None]
  - ABDOMINAL PAIN [None]
  - VOMITING [None]
  - TREMOR [None]
  - FALL [None]
  - RASH [None]
  - DIARRHOEA [None]
